FAERS Safety Report 4587591-5 (Version None)
Quarter: 2005Q1

REPORT INFORMATION
  Report Type: 
  Country: None (occurrence: None)
  Receive Date: 20050125
  Receipt Date: 20041001
  Transmission Date: 20050727
  Serious: No
  Sender: FDA-Public Use
  Company Number: USA040978201

PATIENT
  Age: 81 Year
  Sex: Male
  Weight: 68 kg

DRUGS (3)
  1. FORTEO [Suspect]
     Indication: OSTEOPOROSIS
     Dosage: 20 UG/L DAY
     Dates: start: 20040909
  2. ACTONEL [Concomitant]
  3. CALCIUM GLUCONATE [Concomitant]

REACTIONS (2)
  - INJECTION SITE ERYTHEMA [None]
  - POLLAKIURIA [None]
